FAERS Safety Report 11540004 (Version 1)
Quarter: 2015Q3

REPORT INFORMATION
  Report Type: Spontaneous
  Country: FR (occurrence: FR)
  Receive Date: 20150923
  Receipt Date: 20150923
  Transmission Date: 20151125
  Serious: Yes (Hospitalization)
  Sender: FDA-Public Use
  Company Number: FR-PFIZER INC-2015311358

PATIENT
  Age: 73 Year
  Sex: Male

DRUGS (10)
  1. KEPPRA [Concomitant]
     Active Substance: LEVETIRACETAM
     Indication: EPILEPSY
  2. ERBITUX [Concomitant]
     Active Substance: CETUXIMAB
     Dosage: WEEKLY
     Dates: start: 20150126
  3. METHYLPREDNISOLONE. [Concomitant]
     Active Substance: METHYLPREDNISOLONE
     Indication: LUNG INFECTION
     Dosage: 40 MG, DAILY
     Route: 042
     Dates: start: 20150131
  4. PLITICAN [Suspect]
     Active Substance: ALIZAPRIDE HYDROCHLORIDE
     Indication: NAUSEA
     Dosage: 50 MG, EVERY 6 HOURS
     Route: 042
     Dates: start: 20150127
  5. INEXIUM /01479302/ [Suspect]
     Active Substance: ESOMEPRAZOLE MAGNESIUM
     Indication: PROPHYLAXIS
     Dosage: 1 DF, 1X/DAY
     Route: 048
     Dates: start: 20150130
  6. FUNGIZONE [Suspect]
     Active Substance: AMPHOTERICIN B
     Dosage: 1 TEASPOON EVERY 8 HOURS
     Route: 048
     Dates: start: 20150126
  7. CARBOPLATIN. [Concomitant]
     Active Substance: CARBOPLATIN
     Indication: SQUAMOUS CELL CARCINOMA OF PHARYNX
     Dosage: WEEKLY
     Dates: start: 20150126
  8. PERFALGAN [Suspect]
     Active Substance: ACETAMINOPHEN
     Indication: ANALGESIC THERAPY
     Dosage: ONE VIAL EVERY 6 HOURS
     Route: 042
     Dates: start: 20150127
  9. FLUOROURACIL. [Concomitant]
     Active Substance: FLUOROURACIL
     Dosage: WEEKLY
     Dates: start: 20150126
  10. FRAGMINE [Suspect]
     Active Substance: DALTEPARIN SODIUM
     Dosage: 1 DF, 1X/DAY
     Route: 042
     Dates: start: 20150129

REACTIONS (3)
  - Leukopenia [Not Recovered/Not Resolved]
  - Neutropenia [Not Recovered/Not Resolved]
  - Thrombocytopenia [Not Recovered/Not Resolved]

NARRATIVE: CASE EVENT DATE: 20150204
